FAERS Safety Report 17292011 (Version 2)
Quarter: 2020Q1

REPORT INFORMATION
  Report Type: Spontaneous
  Country: US (occurrence: US)
  Receive Date: 20200121
  Receipt Date: 20200310
  Transmission Date: 20200409
  Serious: Yes (Other)
  Sender: FDA-Public Use
  Company Number: US-BAYER-2019-220098

PATIENT
  Age: 42 Year
  Sex: Female
  Weight: 86.2 kg

DRUGS (7)
  1. XYLOCAINE [Concomitant]
     Active Substance: LIDOCAINE HYDROCHLORIDE
     Dosage: UNK
     Route: 048
     Dates: start: 20191201, end: 20191201
  2. SOK Z BABKI LANCET [Concomitant]
  3. FOLIC ACID. [Concomitant]
     Active Substance: FOLIC ACID
  4. MIRENA [Suspect]
     Active Substance: LEVONORGESTREL
     Indication: CONTRACEPTION
     Dosage: 20 MCG/24HR, CONT
     Route: 015
     Dates: start: 20161109, end: 20191109
  5. FLUTICASONE PROPIONATE. [Concomitant]
     Active Substance: FLUTICASONE PROPIONATE
  6. MIRENA [Suspect]
     Active Substance: LEVONORGESTREL
     Indication: CONTRACEPTION
     Dosage: 20 MCG/24HR, CONT
     Route: 015
     Dates: start: 20191126, end: 20191126
  7. BIOXELIN MULTIVITAMIN TABLET [Concomitant]

REACTIONS (7)
  - Menometrorrhagia [Not Recovered/Not Resolved]
  - Genital haemorrhage [None]
  - Device expulsion [Recovered/Resolved]
  - Dyspareunia [None]
  - Device expulsion [Recovered/Resolved]
  - Dysmenorrhoea [None]
  - Pelvic discomfort [None]

NARRATIVE: CASE EVENT DATE: 2019
